FAERS Safety Report 14502076 (Version 1)
Quarter: 2018Q1

REPORT INFORMATION
  Report Type: Spontaneous
  Country: US (occurrence: US)
  Receive Date: 20180208
  Receipt Date: 20180208
  Transmission Date: 20180509
  Serious: No
  Sender: FDA-Public Use
  Company Number: US-AUROBINDO-AUR-APL-2017-30784

PATIENT
  Sex: Female
  Weight: 53.51 kg

DRUGS (1)
  1. SIMVASTATIN TABLETS USP 10 MG [Suspect]
     Active Substance: SIMVASTATIN
     Indication: ARTERIOSCLEROSIS
     Dosage: 10 MG, DAILY
     Route: 048

REACTIONS (3)
  - Nightmare [Not Recovered/Not Resolved]
  - Product substitution issue [Not Recovered/Not Resolved]
  - Abdominal discomfort [Unknown]
